FAERS Safety Report 9894742 (Version 1)
Quarter: 2014Q1

REPORT INFORMATION
  Report Type: Spontaneous
  Country: US (occurrence: US)
  Receive Date: 20140213
  Receipt Date: 20140213
  Transmission Date: 20141002
  Serious: Yes (Other)
  Sender: FDA-Public Use
  Company Number: US-ENDO PHARMACEUTICALS INC.-AMIT20140009

PATIENT
  Age: 38 Year
  Sex: Female
  Weight: 64.47 kg

DRUGS (2)
  1. AMITRIPTYLINE HCL [Suspect]
     Indication: INSOMNIA
     Route: 048
     Dates: start: 20130210, end: 20130210
  2. AMITRIPTYLINE HCL [Suspect]
     Route: 048
     Dates: start: 2012, end: 20130209

REACTIONS (5)
  - Drug dispensing error [Recovered/Resolved]
  - Accidental overdose [Not Recovered/Not Resolved]
  - Feeling abnormal [Not Recovered/Not Resolved]
  - Memory impairment [Not Recovered/Not Resolved]
  - Hostility [Not Recovered/Not Resolved]
